FAERS Safety Report 26014214 (Version 1)
Quarter: 2025Q4

REPORT INFORMATION
  Report Type: Spontaneous
  Country: US (occurrence: US)
  Receive Date: 20251108
  Receipt Date: 20251108
  Transmission Date: 20260117
  Serious: Yes (Life-Threatening, Hospitalization, Other)
  Sender: UNICHEM
  Company Number: US-UNICHEM LABORATORIES LIMITED-UNI-2025-US-003682

PATIENT

DRUGS (2)
  1. QUETIAPINE [Suspect]
     Active Substance: QUETIAPINE
     Indication: Bipolar disorder
     Dosage: UNK
     Route: 065
  2. LORAZEPAM [Suspect]
     Active Substance: LORAZEPAM
     Indication: Bipolar disorder
     Dosage: UNK
     Route: 065

REACTIONS (11)
  - Overdose [Unknown]
  - Status epilepticus [Recovering/Resolving]
  - Hyporesponsive to stimuli [Recovering/Resolving]
  - Electrocardiogram QRS complex prolonged [Recovering/Resolving]
  - Sinus tachycardia [Recovering/Resolving]
  - Nystagmus [Recovering/Resolving]
  - Clonus [Recovering/Resolving]
  - Myoclonus [Recovering/Resolving]
  - Hyperthermia [Recovering/Resolving]
  - Electrocardiogram QT prolonged [Recovering/Resolving]
  - Somnolence [Recovering/Resolving]
